FAERS Safety Report 7226039-9 (Version None)
Quarter: 2011Q1

REPORT INFORMATION
  Report Type: 
  Country: None (occurrence: None)
  Receive Date: 20110113
  Receipt Date: 20101229
  Transmission Date: 20110831
  Serious: Yes (Disabling)
  Sender: FDA-Public Use
  Company Number: IT-GILEAD-2010-0034033

PATIENT
  Sex: Female

DRUGS (2)
  1. RANEXA [Suspect]
     Indication: ANGINA PECTORIS
     Route: 048
     Dates: start: 20100915, end: 20101111
  2. DEPONIT [Concomitant]
     Route: 003

REACTIONS (2)
  - INCONTINENCE [None]
  - DIPLOPIA [None]
